FAERS Safety Report 5427532-1 (Version None)
Quarter: 2007Q3

REPORT INFORMATION
  Report Type: 
  Country: None (occurrence: None)
  Receive Date: 20070828
  Receipt Date: 20070824
  Transmission Date: 20080115
  Serious: Yes (Life-Threatening)
  Sender: FDA-Public Use
  Company Number: NL-ASTRAZENECA-2007AC01580

PATIENT
  Age: 28114 Day
  Sex: Female

DRUGS (2)
  1. LOSEC I.V. [Suspect]
     Indication: PROPHYLAXIS
     Route: 048
     Dates: start: 20070817, end: 20070818
  2. NAPROXEN [Suspect]
     Indication: POLYMYALGIA RHEUMATICA
     Dates: start: 20070817, end: 20070817

REACTIONS (1)
  - ANAPHYLACTIC SHOCK [None]
